FAERS Safety Report 20470481 (Version 2)
Quarter: 2022Q4

REPORT INFORMATION
  Report Type: Spontaneous
  Country: US (occurrence: US)
  Receive Date: 20220214
  Receipt Date: 20221216
  Transmission Date: 20230112
  Serious: Yes (Death, Hospitalization, Other)
  Sender: FDA-Public Use
  Company Number: US-PFIZER INC-202200255770

PATIENT
  Age: 40 Year
  Sex: Female

DRUGS (12)
  1. AMLODIPINE BESYLATE [Suspect]
     Active Substance: AMLODIPINE BESYLATE
     Dosage: UNK (INGESTION)
     Route: 048
  2. VENLAFAXINE HCL [Suspect]
     Active Substance: VENLAFAXINE HYDROCHLORIDE
     Dosage: UNK (INGESTION, ER)
     Route: 048
  3. ATORVASTATIN CALCIUM [Suspect]
     Active Substance: ATORVASTATIN CALCIUM
     Dosage: UNK (INGESTION)
     Route: 048
  4. METOPROLOL TARTRATE [Suspect]
     Active Substance: METOPROLOL TARTRATE
     Dosage: UNK (INGESTION, ER)
     Route: 048
  5. ATENOLOL [Suspect]
     Active Substance: ATENOLOL
     Dosage: UNK (INGESTION)
     Route: 048
  6. LISINOPRIL [Suspect]
     Active Substance: LISINOPRIL
     Dosage: UNK (INGESTION)
     Route: 048
  7. MONTELUKAST [Suspect]
     Active Substance: MONTELUKAST SODIUM
     Dosage: UNK (INGESTION)
     Route: 048
  8. CLONIDINE [Suspect]
     Active Substance: CLONIDINE
     Dosage: UNK (INGESTION)
     Route: 048
  9. METHADONE [Suspect]
     Active Substance: METHADONE HYDROCHLORIDE
     Dosage: UNK (INGESTION)
     Route: 048
  10. LURASIDONE [Suspect]
     Active Substance: LURASIDONE
     Dosage: UNK (INGESTION)
     Route: 048
  11. FORMOTEROL [Suspect]
     Active Substance: FORMOTEROL
     Dosage: UNK (INGESTION)
     Route: 048
  12. MOMETASONE [Suspect]
     Active Substance: MOMETASONE
     Dosage: UNK (INGESTION)
     Route: 048

REACTIONS (2)
  - Death [Fatal]
  - Medication error [Fatal]

NARRATIVE: CASE EVENT DATE: 20200101
